FAERS Safety Report 8895388 (Version 1)
Quarter: 2012Q4

REPORT INFORMATION
  Report Type: 
  Country: US (occurrence: US)
  Receive Date: 20121107
  Receipt Date: 20121107
  Transmission Date: 20130627
  Serious: No
  Sender: FDA-Public Use
  Company Number: US-ASTRAZENECA-2012SE81665

PATIENT
  Age: 50 Year
  Sex: Female

DRUGS (5)
  1. CRESTOR [Suspect]
     Route: 048
  2. DIAVAN [Concomitant]
  3. ZOLOFT [Concomitant]
  4. SYNTHROID [Concomitant]
  5. BABY ASPIRIN [Concomitant]

REACTIONS (1)
  - Musculoskeletal stiffness [Recovered/Resolved]
